FAERS Safety Report 21332856 (Version 1)
Quarter: 2022Q3

REPORT INFORMATION
  Report Type: Spontaneous
  Country: US (occurrence: None)
  Receive Date: 20220913
  Receipt Date: 20220913
  Transmission Date: 20221027
  Serious: Yes (Other)
  Sender: FDA-Public Use
  Company Number: None

PATIENT
  Age: 70 Year
  Sex: Female

DRUGS (8)
  1. ROSUVASTATIN [Suspect]
     Active Substance: ROSUVASTATIN
     Indication: Blood cholesterol increased
     Dosage: OTHER QUANTITY : 1 TABLET(S);?FREQUENCY : DAILY;?
     Route: 048
  2. METOPROLOL [Concomitant]
     Active Substance: METOPROLOL
  3. EFFEXOR [Concomitant]
     Active Substance: VENLAFAXINE HYDROCHLORIDE
  4. DEPLIN [Concomitant]
     Active Substance: LEVOMEFOLATE CALCIUM
  5. Vitamins D [Concomitant]
  6. C [Concomitant]
  7. ZINC [Concomitant]
     Active Substance: ZINC
  8. E [Concomitant]

REACTIONS (7)
  - Amnesia [None]
  - Memory impairment [None]
  - Balance disorder [None]
  - Fall [None]
  - Pain [None]
  - Gait disturbance [None]
  - Therapy interrupted [None]

NARRATIVE: CASE EVENT DATE: 20220816
